FAERS Safety Report 24916323 (Version 1)
Quarter: 2025Q1

REPORT INFORMATION
  Report Type: Spontaneous
  Country: US (occurrence: None)
  Receive Date: 20250131
  Receipt Date: 20250131
  Transmission Date: 20250409
  Serious: Yes (Hospitalization)
  Sender: FDA-CTU
  Company Number: None

PATIENT
  Age: 19 Year
  Sex: Male
  Weight: 64.4 kg

DRUGS (3)
  1. AQNEURSA [Suspect]
     Active Substance: ACETYLLEUCINE, L-
     Indication: Niemann-Pick disease
     Route: 048
     Dates: start: 20250110
  2. ATROPINE DROPS [Concomitant]
  3. SCOPALAMIN PATCHES [Concomitant]

REACTIONS (3)
  - Pneumonia aspiration [None]
  - Intestinal obstruction [None]
  - Therapy interrupted [None]

NARRATIVE: CASE EVENT DATE: 20250120
